FAERS Safety Report 9020427 (Version 1)
Quarter: 2013Q1

REPORT INFORMATION
  Report Type: Spontaneous
  Country: US (occurrence: US)
  Receive Date: 20130119
  Receipt Date: 20130119
  Transmission Date: 20140127
  Serious: No
  Sender: FDA-Public Use
  Company Number: US-ALLERGAN-1208488US

PATIENT
  Sex: Female

DRUGS (2)
  1. BOTOX? [Suspect]
     Indication: MUSCLE SPASTICITY
     Dosage: UNK
     Route: 030
  2. BOTOX? [Suspect]
     Indication: DYSTONIA

REACTIONS (5)
  - Myositis [Unknown]
  - Dysphagia [Unknown]
  - Muscular weakness [Unknown]
  - Myalgia [Unknown]
  - Influenza like illness [Unknown]
